FAERS Safety Report 5632310-4 (Version None)
Quarter: 2008Q1

REPORT INFORMATION
  Report Type: 
  Country: None (occurrence: None)
  Receive Date: 20080131
  Receipt Date: 20071002
  Transmission Date: 20080703
  Serious: No
  Sender: FDA-Public Use
  Company Number: 163-21880-07100184

PATIENT
  Age: 64 Year
  Sex: Male

DRUGS (2)
  1. REVLIMID [Suspect]
     Indication: MULTIPLE MYELOMA
     Dosage: 15 MG, DAILY 1-21, THEN OFF DAYS 22-28, ORAL
     Route: 048
     Dates: start: 20060811, end: 20070215
  2. REVLIMID [Suspect]
     Indication: MULTIPLE MYELOMA
     Dosage: 15 MG, DAILY 1-21, THEN OFF DAYS 22-28, ORAL
     Route: 048
     Dates: start: 20070421

REACTIONS (2)
  - FATIGUE [None]
  - PAIN IN EXTREMITY [None]
